FAERS Safety Report 4493243-2 (Version None)
Quarter: 2005Q1

REPORT INFORMATION
  Report Type: 
  Country: None (occurrence: None)
  Receive Date: 20041104
  Receipt Date: 20041026
  Transmission Date: 20050727
  Serious: Yes (Other)
  Sender: FDA-Public Use
  Company Number: PHHO2004NO15121

PATIENT
  Age: 70 Year
  Sex: Female
  Weight: 81 kg

DRUGS (4)
  1. LOTREL [Suspect]
     Indication: HYPERTENSION
     Dosage: LEVEL 1
     Route: 048
     Dates: start: 20040923
  2. VIOXX [Concomitant]
     Indication: OSTEOARTHRITIS
     Dosage: 25 UNK, UNK
     Route: 048
     Dates: start: 20021201
  3. ZOCOR [Concomitant]
     Indication: HYPERLIPIDAEMIA
     Dosage: 40 UNK, UNK
     Route: 048
     Dates: start: 20010101
  4. ALBYL [Concomitant]
     Indication: THROMBOSIS
     Dosage: 75 UNK, UNK
     Dates: start: 20010101

REACTIONS (4)
  - ATRIAL FIBRILLATION [None]
  - CHEST DISCOMFORT [None]
  - HYPOTENSION [None]
  - TACHYCARDIA [None]
